FAERS Safety Report 7982433-X (Version None)
Quarter: 2011Q4

REPORT INFORMATION
  Report Type: 
  Country: None (occurrence: None)
  Receive Date: 20111215
  Receipt Date: 20111207
  Transmission Date: 20120403
  Serious: Yes (Other)
  Sender: FDA-Public Use
  Company Number: PHHY2011US15119

PATIENT
  Sex: Female
  Weight: 115.19 kg

DRUGS (22)
  1. GILENYA [Suspect]
     Indication: MULTIPLE SCLEROSIS
     Dosage: 0.5 MG, QD
     Route: 048
     Dates: start: 20110209
  2. FUROSEMIDE [Concomitant]
     Dosage: UNK UKN, UNK
  3. PEPCID [Concomitant]
     Indication: GASTROOESOPHAGEAL REFLUX DISEASE
     Dosage: 40 MG, QD
     Route: 048
  4. ACTONEL [Concomitant]
     Indication: OSTEOPOROSIS
     Dosage: UNK, EVERY MONTH
     Route: 048
  5. ERGOCALCIFEROL [Concomitant]
     Dosage: 50000 IU, EVERY WEEK
     Route: 048
  6. DICLOFENAC SODIUM [Concomitant]
     Dosage: UNK
  7. SIMVASTATIN [Concomitant]
     Dosage: UNK UKN, UNK
  8. LEVOTHYROXINE SODIUM [Concomitant]
     Indication: HYPOTHYROIDISM
     Dosage: 50 UG, QD
     Route: 048
  9. CYMBALTA [Concomitant]
     Indication: DEPRESSION
     Dosage: 60 MG, QD
     Route: 048
  10. ALLEGRA [Concomitant]
     Indication: HYPERSENSITIVITY
     Dosage: 180 MG, QD
     Route: 048
  11. GLIMEPIRIDE [Concomitant]
     Indication: TYPE 2 DIABETES MELLITUS
     Dosage: 4 MG, QD
     Route: 048
  12. TRILEPTAL [Concomitant]
     Indication: PAIN
     Dosage: 450 MG, BID
     Route: 048
  13. TOPAMAX [Concomitant]
     Indication: PAIN
     Dosage: 50 MG, BID
     Route: 048
  14. KLONOPIN [Concomitant]
     Indication: ANXIETY
     Dosage: 0.5 MG, BID
     Route: 048
  15. URECHOLINE [Concomitant]
     Indication: BLADDER DYSFUNCTION
     Dosage: 50 MG, TID
     Route: 048
  16. LEXAPRO [Concomitant]
     Indication: DEPRESSION
     Dosage: 10 MG, QD
     Route: 048
  17. VITAMIN D [Concomitant]
     Dosage: UNK
  18. CRANBERRY [Concomitant]
     Dosage: UNK, QD
  19. ASCORBIC ACID [Concomitant]
     Dosage: UNK, QD
     Route: 048
  20. COQ10 [Concomitant]
     Dosage: UNK, QD
     Route: 048
  21. CALCIUM [Concomitant]
     Dosage: UNK, QD
  22. M.V.I. [Concomitant]
     Dosage: UNK, QD

REACTIONS (7)
  - FUNGAL INFECTION [None]
  - PRODUCTIVE COUGH [None]
  - ERYTHEMA [None]
  - PNEUMONIA [None]
  - BRONCHITIS [None]
  - VIRAL INFECTION [None]
  - PAIN [None]
